FAERS Safety Report 9044961 (Version 1)
Quarter: 2013Q1

REPORT INFORMATION
  Report Type: Report from Study
  Country: US (occurrence: US)
  Receive Date: 20130130
  Receipt Date: 20130130
  Transmission Date: 20140127
  Serious: No
  Sender: FDA-Public Use
  Company Number: US-ABBOTT-12P-163-0967717-00

PATIENT
  Age: 53 Year
  Sex: Female

DRUGS (5)
  1. HUMIRA 40 MG/0.8 ML PEN [Suspect]
     Indication: CROHN^S DISEASE
     Dates: start: 201201
  2. ASACOL [Concomitant]
     Indication: CROHN^S DISEASE
  3. AZILECT [Concomitant]
     Indication: PARKINSON^S DISEASE
     Dosage: 1MG DAILY
  4. SINEMET [Concomitant]
     Indication: PARKINSON^S DISEASE
     Dosage: 25/100 ONE TABLET FOUR TIMES DAILY
  5. PROTONIX [Concomitant]
     Indication: CROHN^S DISEASE
     Dosage: 40MG DAILY

REACTIONS (2)
  - Injection site vesicles [Recovering/Resolving]
  - Injection site pain [Recovering/Resolving]
